FAERS Safety Report 7906769-3 (Version None)
Quarter: 2011Q4

REPORT INFORMATION
  Report Type: 
  Country: None (occurrence: None)
  Receive Date: 20111110
  Receipt Date: 20111103
  Transmission Date: 20120403
  Serious: Yes (Hospitalization)
  Sender: FDA-Public Use
  Company Number: SE-NAPPMUNDI-GBR-2011-0009058

PATIENT
  Sex: Female

DRUGS (1)
  1. NORSPAN 10 MIKROGRAM/ TIMME DEPOTPLASTER [Suspect]
     Indication: PRODUCT USED FOR UNKNOWN INDICATION
     Dosage: 10 MCG, Q1H
     Route: 062

REACTIONS (2)
  - LOSS OF CONSCIOUSNESS [None]
  - WRONG TECHNIQUE IN DRUG USAGE PROCESS [None]
